FAERS Safety Report 10808718 (Version 1)
Quarter: 2015Q1

REPORT INFORMATION
  Report Type: Report from Study
  Country: US (occurrence: US)
  Receive Date: 20150217
  Receipt Date: 20150217
  Transmission Date: 20150721
  Serious: No
  Sender: FDA-Public Use
  Company Number: US-ABBVIE-14K-163-1210054-00

PATIENT
  Age: 23 Year
  Sex: Female

DRUGS (4)
  1. ASACOL [Concomitant]
     Active Substance: MESALAMINE
     Indication: COLITIS ULCERATIVE
     Route: 048
  2. HUMIRA [Suspect]
     Active Substance: ADALIMUMAB
     Indication: CROHN^S DISEASE
     Dates: start: 20140217, end: 20140217
  3. IMURAN [Concomitant]
     Active Substance: AZATHIOPRINE
     Indication: COLITIS ULCERATIVE
     Route: 048
  4. HUMIRA [Suspect]
     Active Substance: ADALIMUMAB

REACTIONS (4)
  - Injection site bruising [Not Recovered/Not Resolved]
  - Inappropriate schedule of drug administration [Not Recovered/Not Resolved]
  - Injection site pain [Not Recovered/Not Resolved]
  - Headache [Not Recovered/Not Resolved]

NARRATIVE: CASE EVENT DATE: 2014
